FAERS Safety Report 9163281 (Version 5)
Quarter: 2013Q2

REPORT INFORMATION
  Report Type: Spontaneous
  Country: JP (occurrence: JP)
  Receive Date: 20130314
  Receipt Date: 20130603
  Transmission Date: 20140414
  Serious: Yes (Hospitalization)
  Sender: FDA-Public Use
  Company Number: JP-GLAXOSMITHKLINE-B0873870A

PATIENT
  Age: 63 Year
  Sex: Male
  Weight: 66 kg

DRUGS (2)
  1. VOTRIENT [Suspect]
     Indication: MALIGNANT FIBROUS HISTIOCYTOMA
     Dosage: 800MG PER DAY
     Route: 048
     Dates: start: 20130216, end: 20130223
  2. HEPARIN CALCIUM [Concomitant]
     Indication: DEEP VEIN THROMBOSIS
     Dosage: 5IU3 TWICE PER DAY
     Route: 058
     Dates: start: 20130215, end: 20130228

REACTIONS (3)
  - Small intestinal perforation [Not Recovered/Not Resolved]
  - Vomiting [Unknown]
  - Gastrointestinal injury [Unknown]
